FAERS Safety Report 8390590-9 (Version None)
Quarter: 2012Q2

REPORT INFORMATION
  Report Type: 
  Country: None (occurrence: None)
  Receive Date: 20120529
  Receipt Date: 20120516
  Transmission Date: 20120825
  Serious: Yes (Hospitalization, Other)
  Sender: FDA-Public Use
  Company Number: US-ELI_LILLY_AND_COMPANY-US201204006040

PATIENT
  Sex: Female
  Weight: 56 kg

DRUGS (12)
  1. CALCIUM [Concomitant]
  2. VITAMIN B-12 [Concomitant]
  3. MULTI-VITAMINS [Concomitant]
  4. PEPCID [Concomitant]
  5. THIAMINE [Concomitant]
  6. FORTEO [Suspect]
     Dosage: 20 UG, QD
  7. FORTEO [Suspect]
     Indication: OSTEOPOROSIS
     Dosage: 20 UG, QD
     Dates: start: 20110801
  8. COLACE [Concomitant]
  9. LOVENOX [Concomitant]
  10. LISINOPRIL [Concomitant]
  11. VITAMIN D [Concomitant]
  12. PERCOCET [Concomitant]

REACTIONS (4)
  - LOWER LIMB FRACTURE [None]
  - ANKLE FRACTURE [None]
  - SYNCOPE [None]
  - FALL [None]
